FAERS Safety Report 11503970 (Version 2)
Quarter: 2015Q4

REPORT INFORMATION
  Report Type: Spontaneous
  Country: DK (occurrence: FR)
  Receive Date: 20150914
  Receipt Date: 20151217
  Transmission Date: 20160304
  Serious: Yes (Hospitalization)
  Sender: FDA-Public Use
  Company Number: FR-FRI-1000079450

PATIENT
  Age: 66 Year
  Sex: Female

DRUGS (11)
  1. LANTUS [Concomitant]
     Active Substance: INSULIN GLARGINE
     Indication: TYPE 2 DIABETES MELLITUS
     Dosage: 36 IU
     Route: 058
  2. LYRICA [Suspect]
     Active Substance: PREGABALIN
     Dosage: 600 MG
     Route: 048
     Dates: start: 20150715, end: 20150730
  3. ESCITALOPRAM [Suspect]
     Active Substance: ESCITALOPRAM OXALATE
     Indication: ANXIETY
     Dosage: 10 MG/KG
     Route: 048
     Dates: start: 2015, end: 20150730
  4. DAFALGAN CODEINE [Suspect]
     Active Substance: ACETAMINOPHEN\CODEINE PHOSPHATE
     Indication: PAIN
     Route: 048
     Dates: start: 20150727, end: 20150730
  5. APPROVEL [Concomitant]
     Indication: HYPERTENSION
     Dosage: 300 MG
     Route: 048
  6. VICTOZA [Concomitant]
     Active Substance: LIRAGLUTIDE
     Indication: TYPE 2 DIABETES MELLITUS
     Dosage: 1.8 ML
     Route: 058
  7. AVLOCARDYL [Concomitant]
     Active Substance: PROPRANOLOL HYDROCHLORIDE
     Indication: PRODUCT USED FOR UNKNOWN INDICATION
     Dosage: 1 DOSAGE FORM
     Route: 048
  8. LYRICA [Suspect]
     Active Substance: PREGABALIN
     Indication: FACIAL PAIN
     Dosage: 50 MG
     Route: 048
     Dates: start: 20150529
  9. SERESTA [Suspect]
     Active Substance: OXAZEPAM
     Indication: ANXIETY
     Dosage: 25 MG
     Route: 048
     Dates: end: 20150730
  10. FLUVASTATINE BASE [Concomitant]
     Active Substance: FLUVASTATIN SODIUM
     Indication: DYSLIPIDAEMIA
     Dosage: 40 MG
     Route: 048
  11. GLUCOPHAGE [Concomitant]
     Active Substance: METFORMIN HYDROCHLORIDE
     Indication: TYPE 2 DIABETES MELLITUS
     Dosage: 1500 MG
     Route: 048

REACTIONS (1)
  - Metabolic encephalopathy [Not Recovered/Not Resolved]

NARRATIVE: CASE EVENT DATE: 20150730
